FAERS Safety Report 5167005-7 (Version None)
Quarter: 2006Q4

REPORT INFORMATION
  Report Type: 
  Country: None (occurrence: None)
  Receive Date: 20061129
  Receipt Date: 20061116
  Transmission Date: 20070319
  Serious: Yes (Hospitalization, Other)
  Sender: FDA-Public Use
  Company Number: 2006142227

PATIENT
  Age: 47 Year
  Sex: Female

DRUGS (2)
  1. METHYLPREDNISOLONE [Suspect]
     Indication: MUSCULAR WEAKNESS
     Dosage: 32 MG (1 D), ORAL
     Route: 048
  2. TOPIRAMATE [Suspect]
     Indication: VASCULITIS
     Dosage: ORAL
     Route: 048

REACTIONS (24)
  - ABNORMAL FAECES [None]
  - ALANINE AMINOTRANSFERASE INCREASED [None]
  - ANOREXIA [None]
  - ASCITES [None]
  - ASPARTATE AMINOTRANSFERASE INCREASED [None]
  - ASTHENIA [None]
  - BILIRUBIN CONJUGATED INCREASED [None]
  - BLOOD ALKALINE PHOSPHATASE INCREASED [None]
  - BLOOD BILIRUBIN INCREASED [None]
  - CEREBROVASCULAR DISORDER [None]
  - CHOLESTASIS [None]
  - CHROMATURIA [None]
  - DISCOMFORT [None]
  - FATIGUE [None]
  - GAMMA-GLUTAMYLTRANSFERASE INCREASED [None]
  - HEPATOCELLULAR DAMAGE [None]
  - HEPATOSPLENOMEGALY [None]
  - HEPATOTOXICITY [None]
  - JAUNDICE [None]
  - NAUSEA [None]
  - NEOPLASM [None]
  - OCULAR ICTERUS [None]
  - PRURITUS [None]
  - VASCULITIS [None]
